FAERS Safety Report 23391874 (Version 1)
Quarter: 2024Q1

REPORT INFORMATION
  Report Type: Spontaneous
  Country: CA (occurrence: None)
  Receive Date: 20240110
  Receipt Date: 20240110
  Transmission Date: 20240409
  Serious: Yes (Hospitalization, Disabling)
  Sender: FDA-Public Use
  Company Number: None

PATIENT
  Age: 80 Year
  Sex: Female
  Weight: 64.8 kg

DRUGS (14)
  1. METFORMIN HYDROCHLORIDE [Suspect]
     Active Substance: METFORMIN HYDROCHLORIDE
     Indication: Type 2 diabetes mellitus
     Dosage: 3 TIMES A DAY ORAL
     Route: 048
  2. ALENDRONATE [Concomitant]
     Active Substance: ALENDRONATE SODIUM
  3. RAMIPRIL [Concomitant]
     Active Substance: RAMIPRIL
  4. Lindner [Concomitant]
  5. GLICLAZIDE [Concomitant]
     Active Substance: GLICLAZIDE
  6. ASPIRIN [Concomitant]
     Active Substance: ASPIRIN
  7. ATORVASTATIN [Concomitant]
     Active Substance: ATORVASTATIN
  8. LEVOTHYROXINE [Concomitant]
     Active Substance: LEVOTHYROXINE
  9. DEVICE [Concomitant]
     Active Substance: DEVICE
  10. Calcium500 [Concomitant]
  11. D200IU [Concomitant]
  12. MINERALS\VITAMINS [Concomitant]
     Active Substance: MINERALS\VITAMINS
  13. MINERALS\VITAMINS [Concomitant]
     Active Substance: MINERALS\VITAMINS
  14. VITAMIN D NOS [Concomitant]
     Active Substance: VITAMIN D NOS

REACTIONS (7)
  - Dysstasia [None]
  - Dizziness [None]
  - Blood pressure increased [None]
  - Blood glucose increased [None]
  - Blood lactic acid increased [None]
  - Mobility decreased [None]
  - Glycosylated haemoglobin increased [None]

NARRATIVE: CASE EVENT DATE: 20190710
